FAERS Safety Report 5913844-1 (Version None)
Quarter: 2008Q4

REPORT INFORMATION
  Report Type: 
  Country: None (occurrence: None)
  Receive Date: 20081009
  Receipt Date: 20081002
  Transmission Date: 20090506
  Serious: Yes (Other)
  Sender: FDA-Public Use
  Company Number: A0750283A

PATIENT
  Age: 78 Year
  Sex: Male

DRUGS (8)
  1. ADVAIR DISKUS 100/50 [Suspect]
     Indication: EMPHYSEMA
     Dosage: 1PUFF TWICE PER DAY
     Route: 055
     Dates: start: 20061001
  2. SPIRIVA [Concomitant]
  3. MICARDIS [Concomitant]
  4. FEXOFENADINE [Concomitant]
  5. NEXIUM [Concomitant]
  6. NASACORT [Concomitant]
  7. VYTORIN [Concomitant]
  8. PREDNISOLONE [Concomitant]

REACTIONS (6)
  - CATARACT [None]
  - COUGH [None]
  - DRUG INEFFECTIVE [None]
  - INTRAOCULAR PRESSURE INCREASED [None]
  - MUSCULOSKELETAL CHEST PAIN [None]
  - WHEEZING [None]
